FAERS Safety Report 18783411 (Version 1)
Quarter: 2021Q1

REPORT INFORMATION
  Report Type: Spontaneous
  Country: CN (occurrence: CN)
  Receive Date: 20210125
  Receipt Date: 20210125
  Transmission Date: 20210419
  Serious: Yes (Other)
  Sender: FDA-Public Use
  Company Number: CN-BRACCO-2021CN00188

PATIENT
  Age: 39 Year
  Sex: Female

DRUGS (1)
  1. MULTIHANCE [Suspect]
     Active Substance: GADOBENATE DIMEGLUMINE
     Indication: MAGNETIC RESONANCE IMAGING
     Dosage: 15 ML, SINGLE
     Route: 042
     Dates: start: 20201211, end: 20201211

REACTIONS (6)
  - Heart rate decreased [Recovered/Resolved]
  - Syncope [Recovered/Resolved]
  - Foaming at mouth [Recovering/Resolving]
  - Vomiting [Recovering/Resolving]
  - Urinary incontinence [Recovering/Resolving]
  - Unresponsive to stimuli [Recovered/Resolved]

NARRATIVE: CASE EVENT DATE: 20201211
